FAERS Safety Report 9272053 (Version 1)
Quarter: 2013Q2

REPORT INFORMATION
  Report Type: Spontaneous
  Country: US (occurrence: US)
  Receive Date: 20130506
  Receipt Date: 20130506
  Transmission Date: 20140414
  Serious: No
  Sender: FDA-Public Use
  Company Number: US-PFIZER INC-2013139590

PATIENT
  Age: 50 Year
  Sex: Female
  Weight: 68.03 kg

DRUGS (1)
  1. CHANTIX [Suspect]
     Indication: SMOKING CESSATION THERAPY
     Dosage: UNK
     Route: 048
     Dates: start: 201201, end: 2012

REACTIONS (3)
  - Abnormal dreams [Unknown]
  - Blood potassium decreased [Unknown]
  - Hypertension [Unknown]
